FAERS Safety Report 8446415 (Version 2)
Quarter: 2012Q4

REPORT INFORMATION
  Report Type: 
  Country: JP (occurrence: JP)
  Receive Date: 20120307
  Receipt Date: 20120924
  Transmission Date: 20130627
  Serious: Yes (Other)
  Sender: FDA-Public Use
  Company Number: JP-PFIZER INC-2011310919

PATIENT
  Sex: Male

DRUGS (4)
  1. LYRICA [Suspect]
     Indication: DYSTONIA
     Dosage: UNK, as needed
     Route: 048
     Dates: start: 201105
  2. ARTANE SEQUELS [Suspect]
     Dosage: UNK
     Route: 048
  3. CELESTAMINE [Concomitant]
     Dosage: UNK
  4. TEGRETOL [Concomitant]
     Dosage: UNK

REACTIONS (5)
  - Hypokinesia [Unknown]
  - Memory impairment [Unknown]
  - Dementia [Unknown]
  - Dizziness [Unknown]
  - Somnolence [Unknown]
